FAERS Safety Report 10879780 (Version 2)
Quarter: 2015Q1

REPORT INFORMATION
  Report Type: Spontaneous
  Country: US (occurrence: US)
  Receive Date: 20150302
  Receipt Date: 20150319
  Transmission Date: 20150721
  Serious: No
  Sender: FDA-Public Use
  Company Number: US-PFIZER INC-2015064608

PATIENT
  Age: 75 Year
  Sex: Female
  Weight: 75 kg

DRUGS (12)
  1. COREG [Concomitant]
     Active Substance: CARVEDILOL
  2. LIPITOR [Suspect]
     Active Substance: ATORVASTATIN CALCIUM
     Indication: BLOOD CHOLESTEROL
     Dosage: 10 MG, 1X/DAY
     Route: 048
  3. THEOPHYLLINE [Concomitant]
     Active Substance: THEOPHYLLINE ANHYDROUS
  4. PROTONIX [Concomitant]
     Active Substance: PANTOPRAZOLE SODIUM
  5. XANAX [Concomitant]
     Active Substance: ALPRAZOLAM
  6. IRON [Concomitant]
     Active Substance: IRON
  7. VITAMIN D [Concomitant]
     Active Substance: CHOLECALCIFEROL
     Dosage: 50000 MG, WEEKLY
  8. PLAVIX [Concomitant]
     Active Substance: CLOPIDOGREL BISULFATE
  9. CLARITIN [Concomitant]
     Active Substance: LORATADINE
  10. NORCO [Concomitant]
     Active Substance: ACETAMINOPHEN\HYDROCODONE BITARTRATE
     Indication: PAIN
  11. VISTARIL [Concomitant]
     Active Substance: HYDROXYZINE PAMOATE
  12. LEXAPRO [Concomitant]
     Active Substance: ESCITALOPRAM OXALATE

REACTIONS (3)
  - Dyspnoea [Not Recovered/Not Resolved]
  - Weight decreased [Unknown]
  - Body height decreased [Unknown]
